FAERS Safety Report 24350397 (Version 1)
Quarter: 2024Q3

REPORT INFORMATION
  Report Type: Spontaneous
  Country: RU (occurrence: RU)
  Receive Date: 20240923
  Receipt Date: 20240923
  Transmission Date: 20241017
  Serious: No
  Sender: ROCHE
  Company Number: RU-ROCHE-3512478

PATIENT
  Age: 34 Year
  Sex: Female

DRUGS (3)
  1. TRASTUZUMAB [Suspect]
     Active Substance: TRASTUZUMAB
     Indication: Breast cancer
     Dosage: 6 CYCLES, SUBSEQUENT DOSE RECEIVED ON /JAN/2022
     Route: 065
     Dates: start: 20210909
  2. PERTUZUMAB [Suspect]
     Active Substance: PERTUZUMAB
     Indication: Breast cancer
     Dosage: 6 CYCLES, SUBSEQUENT DOSE RECEIVED ON JAN/2022
     Route: 065
     Dates: start: 20210909
  3. DOCETAXEL [Suspect]
     Active Substance: DOCETAXEL\DOCETAXEL ANHYDROUS
     Indication: Breast cancer
     Dosage: 6 CYCLES
     Route: 065
     Dates: start: 20210909

REACTIONS (4)
  - Infusion related reaction [Unknown]
  - Dyspnoea [Unknown]
  - Tachycardia [Unknown]
  - Urticaria [Unknown]
